FAERS Safety Report 9068532 (Version 2)
Quarter: 2014Q2

REPORT INFORMATION
  Report Type: Report from Study
  Country: AU (occurrence: AU)
  Receive Date: 20130206
  Receipt Date: 20140312
  Transmission Date: 20141212
  Serious: Yes (Hospitalization)
  Sender: FDA-Public Use
  Company Number: PHHO2011AU14237

PATIENT
  Age: 71 Year
  Sex: Female
  Weight: 82 kg

DRUGS (6)
  1. HYDROCHLOROTHIAZIDE, IRBESARTAN [Suspect]
     Dosage: 300 /12.5
     Dates: start: 20030811
  2. PAROXETINE SANDOZ [Suspect]
     Dosage: 20 MG, UNK
     Dates: start: 20030811
  3. FELODIPINE [Suspect]
     Dosage: 5 MG, UNK
     Dates: start: 2006
  4. NO TREATMENT RECEIVED [Suspect]
     Indication: BREAST CANCER
     Dosage: UNK, NO TREATMENT
  5. ASPIRIN [Concomitant]
     Dosage: 100 MG, UNK
     Dates: start: 20030811
  6. CALTRATE [Concomitant]
     Dosage: 1 DF, UNK
     Dates: start: 20030811

REACTIONS (1)
  - Upper limb fracture [Recovered/Resolved]
